FAERS Safety Report 19507062 (Version 1)
Quarter: 2021Q3

REPORT INFORMATION
  Report Type: Spontaneous
  Country: US (occurrence: US)
  Receive Date: 20210708
  Receipt Date: 20210708
  Transmission Date: 20211014
  Serious: No
  Sender: FDA-Public Use
  Company Number: None

PATIENT
  Age: 59 Year
  Sex: Male

DRUGS (1)
  1. HYDROCHLOROTHIAZIDE (HYDROCHLOROTHIAZIDE 12.5MG TAB) [Suspect]
     Active Substance: HYDROCHLOROTHIAZIDE
     Dates: start: 20210601

REACTIONS (1)
  - Hypokalaemia [None]

NARRATIVE: CASE EVENT DATE: 20210601
